FAERS Safety Report 7825335-1 (Version None)
Quarter: 2011Q4

REPORT INFORMATION
  Report Type: 
  Country: None (occurrence: None)
  Receive Date: 20111019
  Receipt Date: 20110922
  Transmission Date: 20120403
  Serious: Yes (Other)
  Sender: FDA-Public Use
  Company Number: PHHY2011BR90679

PATIENT
  Age: 69 Year
  Sex: Male

DRUGS (3)
  1. ENALAPRIL MALEATE [Suspect]
     Dosage: 40 MG, (PER DAY)
  2. ATENOLOL [Suspect]
     Dosage: 25 MG, (PER DAY)
  3. ENALAPRIL MALEATE [Suspect]
     Dosage: 20 MG, (PER DAY)

REACTIONS (3)
  - BLOOD PRESSURE INCREASED [None]
  - BUNDLE BRANCH BLOCK LEFT [None]
  - CONGESTIVE CARDIOMYOPATHY [None]
